FAERS Safety Report 17224737 (Version 1)
Quarter: 2020Q1

REPORT INFORMATION
  Report Type: Spontaneous
  Country: US (occurrence: US)
  Receive Date: 20191231
  Receipt Date: 20191231
  Transmission Date: 20200409
  Serious: Yes (Other)
  Sender: FDA-Public Use
  Company Number: None

PATIENT
  Age: 24 Year
  Sex: Female
  Weight: 97.65 kg

DRUGS (9)
  1. VERAPAMIL [Concomitant]
     Active Substance: VERAPAMIL HYDROCHLORIDE
  2. ACEBUTOLOL [Concomitant]
     Active Substance: ACEBUTOLOL
  3. BENADRYL [Concomitant]
     Active Substance: DIPHENHYDRAMINE HYDROCHLORIDE
  4. CORLANOR [Suspect]
     Active Substance: IVABRADINE HYDROCHLORIDE
     Indication: AUTONOMIC NERVOUS SYSTEM IMBALANCE
     Dosage: ?          QUANTITY:1 TABLET(S);?
     Route: 048
     Dates: start: 20190415, end: 20190416
  5. ZONISAMIDE. [Concomitant]
     Active Substance: ZONISAMIDE
  6. AJOVY [Concomitant]
     Active Substance: FREMANEZUMAB-VFRM
  7. NAPROXEN. [Concomitant]
     Active Substance: NAPROXEN
  8. BUSPAR [Concomitant]
     Active Substance: BUSPIRONE HYDROCHLORIDE
  9. VYVANSE [Concomitant]
     Active Substance: LISDEXAMFETAMINE DIMESYLATE

REACTIONS (5)
  - Motion sickness [None]
  - Nausea [None]
  - Visual impairment [None]
  - Halo vision [None]
  - Gait disturbance [None]

NARRATIVE: CASE EVENT DATE: 20190415
